FAERS Safety Report 9310921 (Version 3)
Quarter: 2013Q3

REPORT INFORMATION
  Report Type: Spontaneous
  Country: IT (occurrence: IT)
  Receive Date: 20130528
  Receipt Date: 20130815
  Transmission Date: 20140515
  Serious: Yes (Death, Life-Threatening, Hospitalization, Other)
  Sender: FDA-Public Use
  Company Number: IT-TEVA-381684ISR

PATIENT
  Age: 73 Year
  Sex: Female
  Weight: 37 kg

DRUGS (1)
  1. OXALIPLATINO TEVA [Suspect]
     Indication: GASTROINTESTINAL NEOPLASM
     Dosage: 85 MG/M2 DAILY;
     Route: 042
     Dates: start: 20121212, end: 20130116

REACTIONS (8)
  - Bronchospasm [Recovering/Resolving]
  - Hypertension [Recovering/Resolving]
  - Death [Fatal]
  - Lymphadenopathy [Unknown]
  - Renal failure [Unknown]
  - General physical health deterioration [Unknown]
  - Hydronephrosis [Unknown]
  - Pleural effusion [Unknown]
